FAERS Safety Report 5884490-3 (Version None)
Quarter: 2008Q3

REPORT INFORMATION
  Report Type: 
  Country: None (occurrence: None)
  Receive Date: 20080916
  Receipt Date: 20080910
  Transmission Date: 20090109
  Serious: Yes (Hospitalization)
  Sender: FDA-Public Use
  Company Number: FR-JNJFOC-20080306771

PATIENT
  Sex: Male

DRUGS (14)
  1. DURAGESIC-100 [Suspect]
     Route: 062
  2. DURAGESIC-100 [Suspect]
     Indication: DRUG USE FOR UNKNOWN INDICATION
     Route: 062
  3. COVERSYL [Interacting]
     Indication: DRUG USE FOR UNKNOWN INDICATION
     Route: 048
     Dates: start: 20071206, end: 20071219
  4. ALDACTONE [Interacting]
     Indication: DRUG USE FOR UNKNOWN INDICATION
     Route: 048
     Dates: start: 20071206, end: 20071219
  5. MODURETIC 5-50 [Interacting]
     Indication: DRUG USE FOR UNKNOWN INDICATION
     Route: 048
  6. OGAST [Concomitant]
     Route: 065
  7. ASPIRIN [Concomitant]
     Route: 065
  8. NITROGLYCERIN [Concomitant]
     Route: 065
  9. MOLSIDOMINE [Concomitant]
     Route: 065
  10. FUROSEMIDE [Concomitant]
     Route: 065
  11. IPERTEN [Concomitant]
     Route: 065
  12. AMILORIDE HYDROCHLORIDE [Concomitant]
     Route: 065
  13. HYDORCHLOROTHIAZIDE [Concomitant]
     Route: 065
  14. PREDNISOLONE [Concomitant]
     Route: 065

REACTIONS (4)
  - ACCIDENTAL OVERDOSE [None]
  - DISORIENTATION [None]
  - DRUG INTERACTION [None]
  - SOMNOLENCE [None]
